FAERS Safety Report 5406330-9 (Version None)
Quarter: 2007Q3

REPORT INFORMATION
  Report Type: 
  Country: None (occurrence: None)
  Receive Date: 20070806
  Receipt Date: 20070802
  Transmission Date: 20080115
  Serious: Yes (Death, Hospitalization)
  Sender: FDA-Public Use
  Company Number: JP-BRISTOL-MYERS SQUIBB COMPANY-13820279

PATIENT
  Age: 69 Year
  Sex: Female

DRUGS (2)
  1. BRIPLATIN [Suspect]
     Indication: UTERINE CANCER
     Route: 041
     Dates: start: 19980610, end: 19981015
  2. ADRIAMYCIN PFS [Suspect]
     Indication: UTERINE CANCER
     Route: 042

REACTIONS (3)
  - IMMUNODEFICIENCY [None]
  - MYELODYSPLASTIC SYNDROME [None]
  - SEPSIS [None]
